FAERS Safety Report 16370168 (Version 1)
Quarter: 2019Q2

REPORT INFORMATION
  Report Type: Spontaneous
  Country: US (occurrence: US)
  Receive Date: 20190530
  Receipt Date: 20190530
  Transmission Date: 20190711
  Serious: No
  Sender: FDA-Public Use
  Company Number: US-GLENMARK PHARMACEUTICALS-2019GMK040701

PATIENT

DRUGS (2)
  1. MUPIROCIN CREAM USP, 2% [Suspect]
     Active Substance: MUPIROCIN
     Indication: WOUND
     Dosage: APPLY TWICE A DAY INSIDE THE NOSE
     Route: 045
     Dates: start: 20190406, end: 201904
  2. MUPIROCIN CREAM USP, 2% [Suspect]
     Active Substance: MUPIROCIN
     Indication: NASAL INJURY

REACTIONS (4)
  - Product use in unapproved indication [Unknown]
  - No adverse event [Unknown]
  - Product leakage [Unknown]
  - Incorrect route of product administration [Unknown]

NARRATIVE: CASE EVENT DATE: 20190405
